FAERS Safety Report 4773850-X (Version None)
Quarter: 2005Q3

REPORT INFORMATION
  Report Type: 
  Country: None (occurrence: None)
  Receive Date: 20050919
  Receipt Date: 20050905
  Transmission Date: 20060218
  Serious: Yes (Hospitalization)
  Sender: FDA-Public Use
  Company Number: CERZ-10739

PATIENT
  Age: 34 Year
  Sex: Female
  Weight: 54 kg

DRUGS (3)
  1. CEREZYME [Suspect]
     Indication: GAUCHER'S DISEASE
     Dosage: 60 U/KG Q2WKS IV
     Route: 042
  2. CEREZYME [Suspect]
     Indication: GAUCHER'S DISEASE
     Dosage: 1800 UNITS Q3WKS IV
     Route: 042
     Dates: start: 20040301, end: 20040901
  3. CEREZYME [Suspect]
     Indication: GAUCHER'S DISEASE
     Dosage: 1800 UNITS Q2WKS IV
     Route: 042
     Dates: start: 20000101, end: 20040301

REACTIONS (41)
  - ACTIVITIES OF DAILY LIVING IMPAIRED [None]
  - ALPHA 1 GLOBULIN INCREASED [None]
  - ALPHA 2 GLOBULIN INCREASED [None]
  - ANGIOTENSIN CONVERTING ENZYME INCREASED [None]
  - ANTINUCLEAR ANTIBODY POSITIVE [None]
  - ANTIPHOSPHOLIPID ANTIBODIES POSITIVE [None]
  - ARTHRALGIA [None]
  - ARTHROPATHY [None]
  - ASTHENIA [None]
  - AUTOIMMUNE DISORDER [None]
  - BLOOD FIBRINOGEN INCREASED [None]
  - BLOOD IMMUNOGLOBULIN G INCREASED [None]
  - BONE INFARCTION [None]
  - CD8 LYMPHOCYTES DECREASED [None]
  - CHITOTRIOSIDASE INCREASED [None]
  - COELIAC DISEASE [None]
  - CROHN'S DISEASE [None]
  - CYTOLYTIC HEPATITIS [None]
  - DNA ANTIBODY POSITIVE [None]
  - GASTRITIS ATROPHIC [None]
  - GENERAL PHYSICAL HEALTH DETERIORATION [None]
  - GRANULOMA [None]
  - HAEMOGLOBIN DECREASED [None]
  - IMMUNOGLOBULINS INCREASED [None]
  - INFLAMMATION [None]
  - KERATOCONJUNCTIVITIS SICCA [None]
  - LABORATORY TEST ABNORMAL [None]
  - LYMPHOCYTE COUNT DECREASED [None]
  - LYMPHOCYTOSIS [None]
  - OEDEMA PERIPHERAL [None]
  - PLATELET COUNT DECREASED [None]
  - PLATELET COUNT INCREASED [None]
  - POLYARTHRITIS [None]
  - REFLUX GASTRITIS [None]
  - SALIVARY GLAND DISORDER [None]
  - SARCOIDOSIS [None]
  - SIALOADENITIS [None]
  - SICCA SYNDROME [None]
  - SYSTEMIC LUPUS ERYTHEMATOSUS [None]
  - WEIGHT DECREASED [None]
  - WHIPPLE'S DISEASE [None]
